FAERS Safety Report 14399443 (Version 2)
Quarter: 2018Q2

REPORT INFORMATION
  Report Type: Spontaneous
  Country: US (occurrence: US)
  Receive Date: 20180117
  Receipt Date: 20180419
  Transmission Date: 20180711
  Serious: Yes (Death, Hospitalization)
  Sender: FDA-Public Use
  Company Number: US-JNJFOC-20180112578

PATIENT
  Age: 83 Year
  Sex: Female
  Weight: 62.14 kg

DRUGS (4)
  1. XARELTO [Suspect]
     Active Substance: RIVAROXABAN
     Indication: ATRIAL FIBRILLATION
     Dosage: VARYING DOSES OF RIVAROXABAN 15 MG AND RIVAROXABAN 20 MG
     Route: 048
     Dates: start: 20131021, end: 20150320
  2. XARELTO [Suspect]
     Active Substance: RIVAROXABAN
     Indication: THROMBOSIS PROPHYLAXIS
     Dosage: VARYING DOSES OF RIVAROXABAN 15 MG AND RIVAROXABAN 20 MG
     Route: 048
     Dates: start: 20131021, end: 20150320
  3. XARELTO [Suspect]
     Active Substance: RIVAROXABAN
     Indication: ATRIAL FIBRILLATION
     Dosage: VARYING DOSES OF RIVAROXABAN 15 MG AND RIVAROXABAN 20 MG
     Route: 048
     Dates: start: 20131021, end: 20150320
  4. XARELTO [Suspect]
     Active Substance: RIVAROXABAN
     Indication: CEREBROVASCULAR ACCIDENT PROPHYLAXIS
     Dosage: VARYING DOSES OF RIVAROXABAN 15 MG AND RIVAROXABAN 20 MG
     Route: 048
     Dates: start: 20131021, end: 20150320

REACTIONS (2)
  - Acute kidney injury [Recovering/Resolving]
  - Gastrointestinal haemorrhage [Recovering/Resolving]

NARRATIVE: CASE EVENT DATE: 201412
